FAERS Safety Report 15284762 (Version 1)
Quarter: 2018Q3

REPORT INFORMATION
  Report Type: Report from Study
  Country: CA (occurrence: CA)
  Receive Date: 20180816
  Receipt Date: 20180816
  Transmission Date: 20181010
  Serious: Yes (Hospitalization, Other)
  Sender: FDA-Public Use
  Company Number: CA-JNJFOC-20180809809

PATIENT
  Age: 19 Year
  Sex: Female
  Weight: 39 kg

DRUGS (1)
  1. STELARA [Suspect]
     Active Substance: USTEKINUMAB
     Indication: CROHN^S DISEASE
     Dosage: STRENGTH = 90 MG
     Route: 058
     Dates: start: 2017

REACTIONS (7)
  - Postoperative wound infection [Unknown]
  - Off label use [Unknown]
  - Product use issue [Unknown]
  - Abdominal pain lower [Recovering/Resolving]
  - Intestinal resection [Recovering/Resolving]
  - Pallor [Unknown]
  - Abdominal rigidity [Unknown]

NARRATIVE: CASE EVENT DATE: 2017
